FAERS Safety Report 4324617-8 (Version None)
Quarter: 2004Q1

REPORT INFORMATION
  Report Type: 
  Country: None (occurrence: None)
  Receive Date: 20040325
  Receipt Date: 20040325
  Transmission Date: 20041129
  Serious: Yes (Other)
  Sender: FDA-Public Use
  Company Number: None

PATIENT
  Age: 41 Year
  Sex: Female
  Weight: 58.9676 kg

DRUGS (4)
  1. ANCEF [Suspect]
     Indication: POSTOPERATIVE INFECTION
     Dates: start: 20020520, end: 20020530
  2. RELAFEN [Suspect]
     Indication: SHOULDER OPERATION
     Dates: start: 20021220, end: 20021230
  3. KEFLEX [Suspect]
  4. AUGMENTIN [Suspect]

REACTIONS (5)
  - ABASIA [None]
  - BLISTER [None]
  - HEADACHE [None]
  - SCAR [None]
  - SERUM SICKNESS [None]
